FAERS Safety Report 21471220 (Version 1)
Quarter: 2022Q4

REPORT INFORMATION
  Report Type: Spontaneous
  Country: US (occurrence: None)
  Receive Date: 20221017
  Receipt Date: 20221017
  Transmission Date: 20230113
  Serious: Yes (Hospitalization, Other)
  Sender: FDA-Public Use
  Company Number: None

PATIENT
  Age: 61 Year
  Sex: Female
  Weight: 94.95 kg

DRUGS (1)
  1. PRAZOSIN [Suspect]
     Active Substance: PRAZOSIN
     Indication: Sleep disorder
     Dates: start: 20220524, end: 20220525

REACTIONS (4)
  - Loss of consciousness [None]
  - Fall [None]
  - Facial bones fracture [None]
  - Blood pressure decreased [None]

NARRATIVE: CASE EVENT DATE: 20220524
